FAERS Safety Report 21240720 (Version 2)
Quarter: 2025Q1

REPORT INFORMATION
  Report Type: Spontaneous
  Country: US (occurrence: US)
  Receive Date: 20220823
  Receipt Date: 20250326
  Transmission Date: 20250408
  Serious: No
  Sender: SANOFI AVENTIS
  Company Number: US-SA-SAC20220816000869

PATIENT
  Age: 50 Year
  Sex: Female

DRUGS (1)
  1. NEXVIAZYME [Suspect]
     Active Substance: AVALGLUCOSIDASE ALFA-NGPT
     Route: 065

REACTIONS (1)
  - Drug specific antibody present [Recovered/Resolved]

NARRATIVE: CASE EVENT DATE: 20220803
